FAERS Safety Report 8945246 (Version 1)
Quarter: 2012Q4

REPORT INFORMATION
  Report Type: 
  Country: GR (occurrence: GR)
  Receive Date: 20121205
  Receipt Date: 20121205
  Transmission Date: 20130627
  Serious: Yes (Hospitalization)
  Sender: FDA-Public Use
  Company Number: GR-US-EMD SERONO, INC.-7178462

PATIENT
  Age: 16 Year
  Sex: Male

DRUGS (2)
  1. SAIZEN [Suspect]
     Indication: GROWTH HORMONE DEFICIENCY
     Dates: start: 2008, end: 20121030
  2. SAIZEN [Suspect]
     Dates: start: 20121106

REACTIONS (1)
  - Bone cyst [Recovered/Resolved]
